FAERS Safety Report 10588139 (Version 1)
Quarter: 2014Q4

REPORT INFORMATION
  Report Type: Spontaneous
  Country: DE (occurrence: DE)
  Receive Date: 20141117
  Receipt Date: 20141117
  Transmission Date: 20150529
  Serious: Yes (Other)
  Sender: FDA-Public Use
  Company Number: GXKR2014DE004174

PATIENT
  Sex: Female

DRUGS (2)
  1. PANTOPRAZOL HEUMANN [Concomitant]
     Dosage: 20 MG, QD
     Route: 048
     Dates: start: 20141019
  2. RAMIPRIL 1A PHARMA PLUS [Suspect]
     Active Substance: RAMIPRIL
     Dosage: 0.5 DF, QD
     Route: 048
     Dates: start: 20141019, end: 20141023

REACTIONS (4)
  - Glossodynia [Recovering/Resolving]
  - Rash pustular [Recovering/Resolving]
  - Lip swelling [Recovering/Resolving]
  - Pruritus [Recovering/Resolving]

NARRATIVE: CASE EVENT DATE: 20141019
